FAERS Safety Report 5801477-7 (Version None)
Quarter: 2008Q3

REPORT INFORMATION
  Report Type: 
  Country: None (occurrence: None)
  Receive Date: 20080703
  Receipt Date: 20080703
  Transmission Date: 20090109
  Serious: Yes (Other)
  Sender: FDA-Public Use
  Company Number: None

PATIENT
  Sex: Female
  Weight: 82.5 kg

DRUGS (2)
  1. OXALIPLATIN [Suspect]
     Indication: RECTAL CANCER METASTATIC
     Dosage: 250MG ~EVERY 2 WEEKS IV DRIP
     Route: 041
  2. XELODA [Concomitant]

REACTIONS (5)
  - COUGH [None]
  - FLUSHING [None]
  - OXYGEN SATURATION DECREASED [None]
  - PAIN IN JAW [None]
  - PHARMACEUTICAL PRODUCT COMPLAINT [None]
